FAERS Safety Report 15723113 (Version 1)
Quarter: 2018Q4

REPORT INFORMATION
  Report Type: Spontaneous
  Country: CA (occurrence: CA)
  Receive Date: 20181214
  Receipt Date: 20181214
  Transmission Date: 20190205
  Serious: Yes (Other)
  Sender: FDA-Public Use
  Company Number: CA-PFIZER INC-2018509986

PATIENT
  Age: 48 Year
  Sex: Female

DRUGS (2)
  1. XELJANZ XR [Suspect]
     Active Substance: TOFACITINIB CITRATE
     Indication: RHEUMATOID ARTHRITIS
     Dosage: 11 MG, 3X/DAY
     Route: 048
     Dates: start: 201812
  2. ARAVA [Interacting]
     Active Substance: LEFLUNOMIDE
     Dosage: UNK

REACTIONS (4)
  - Bowel movement irregularity [Unknown]
  - Immunosuppression [Unknown]
  - Diarrhoea [Recovered/Resolved]
  - Drug interaction [Unknown]
